FAERS Safety Report 20308229 (Version 1)
Quarter: 2022Q1

REPORT INFORMATION
  Report Type: Spontaneous
  Country: DE (occurrence: DE)
  Receive Date: 20220107
  Receipt Date: 20220107
  Transmission Date: 20220423
  Serious: Yes (Congenital Anomaly, Other)
  Sender: FDA-Public Use
  Company Number: None

PATIENT
  Age: 4 Day
  Sex: Male
  Weight: 3.406 kg

DRUGS (4)
  1. AMITRIPTYLINE [Suspect]
     Active Substance: AMITRIPTYLINE
     Dosage: 50 (MG / D (UP TO 25 MG / D))
     Route: 064
     Dates: start: 20200930, end: 20201118
  2. LEVOTHYROXINE [Concomitant]
     Active Substance: LEVOTHYROXINE
     Indication: Autoimmune thyroiditis
     Dosage: 75 (UG /D)
     Route: 064
     Dates: start: 20200930, end: 20210705
  3. PROMETHAZINE [Concomitant]
     Active Substance: PROMETHAZINE HYDROCHLORIDE
     Indication: Sleep disorder
     Dosage: UNTIL 4 MONTHS PRIOR TO CONCEPTION
     Route: 064
  4. QUETIAPINE [Concomitant]
     Active Substance: QUETIAPINE
     Indication: Sleep disorder
     Dosage: 100 (MG / D (UP TO 50 MG / D))
     Route: 064
     Dates: start: 20200927, end: 20201021

REACTIONS (2)
  - Foetal exposure during pregnancy [Unknown]
  - Congenital ureteropelvic junction obstruction [Unknown]

NARRATIVE: CASE EVENT DATE: 20210701
